FAERS Safety Report 13276211 (Version 1)
Quarter: 2017Q1

REPORT INFORMATION
  Report Type: Spontaneous
  Country: US (occurrence: US)
  Receive Date: 20170228
  Receipt Date: 20170228
  Transmission Date: 20170428
  Serious: Yes (Other)
  Sender: FDA-Public Use
  Company Number: US-GLAXOSMITHKLINE-US2017026763

PATIENT
  Sex: Male

DRUGS (1)
  1. ANORO ELLIPTA [Suspect]
     Active Substance: UMECLIDINIUM BROMIDE\VILANTEROL TRIFENATATE
     Indication: CHRONIC OBSTRUCTIVE PULMONARY DISEASE
     Dosage: 1 PUFF(S), BID
     Route: 055

REACTIONS (7)
  - Ocular hyperaemia [Unknown]
  - Overdose [Unknown]
  - Hypoaesthesia oral [Unknown]
  - Intranasal hypoaesthesia [Unknown]
  - Inappropriate schedule of drug administration [Unknown]
  - Oculogyric crisis [Unknown]
  - Adverse drug reaction [Unknown]
